FAERS Safety Report 20842021 (Version 1)
Quarter: 2022Q2

REPORT INFORMATION
  Report Type: Report from Study
  Country: CA (occurrence: CA)
  Receive Date: 20220518
  Receipt Date: 20220518
  Transmission Date: 20220720
  Serious: Yes (Hospitalization)
  Sender: FDA-Public Use
  Company Number: CA-ABBVIE-22K-028-4372139-00

PATIENT
  Sex: Female

DRUGS (4)
  1. HUMIRA [Suspect]
     Active Substance: ADALIMUMAB
     Indication: Hidradenitis
     Route: 058
     Dates: start: 20220215
  2. HUMIRA [Suspect]
     Active Substance: ADALIMUMAB
     Dosage: GETTING DOUBLE DOSE OF HUMIRA
     Route: 058
  3. PRIVIGEN [Concomitant]
     Active Substance: HUMAN IMMUNOGLOBULIN G
     Indication: Product used for unknown indication
     Dosage: TWO ROUNDS OF INTRAVENOUS IMMUNE GLOBULIN
     Route: 042
  4. PREDNISONE [Concomitant]
     Active Substance: PREDNISONE
     Indication: Product used for unknown indication
     Dosage: A ROUND OF PREDNISONE
     Route: 065

REACTIONS (4)
  - Skin ulcer [Not Recovered/Not Resolved]
  - Hypoaesthesia [Unknown]
  - Impaired healing [Unknown]
  - Abscess [Unknown]

NARRATIVE: CASE EVENT DATE: 20220101
